FAERS Safety Report 15738538 (Version 3)
Quarter: 2019Q1

REPORT INFORMATION
  Report Type: Spontaneous
  Country: US (occurrence: US)
  Receive Date: 20181219
  Receipt Date: 20190208
  Transmission Date: 20190417
  Serious: Yes (Hospitalization)
  Sender: FDA-Public Use
  Company Number: US-PFIZER INC-2018514067

PATIENT
  Age: 82 Year
  Sex: Female
  Weight: 46.27 kg

DRUGS (4)
  1. ADVIL [Suspect]
     Active Substance: IBUPROFEN
     Indication: HOT FLUSH
  2. ADVIL [Suspect]
     Active Substance: IBUPROFEN
     Indication: PAIN
     Dosage: 1 DF, UNK (ONE TABLET CRUSHED AND DISSOLVED IN JUICE AND DRANK THE JUICE)
  3. ADVIL [Suspect]
     Active Substance: IBUPROFEN
     Indication: FEELING HOT
  4. HYDROCODONE [Concomitant]
     Active Substance: HYDROCODONE
     Indication: PAIN
     Dosage: 3.25 MG, AS NEEDED (CRUSHED AND PUT IN JUICE)
     Route: 048

REACTIONS (6)
  - Intentional product misuse [Unknown]
  - Burning sensation [Recovered/Resolved]
  - Lacrimation increased [Unknown]
  - Oral discomfort [Recovered/Resolved]
  - Throat irritation [Recovered/Resolved]
  - Oral pain [Unknown]

NARRATIVE: CASE EVENT DATE: 20181208
